FAERS Safety Report 7707156-3 (Version None)
Quarter: 2011Q3

REPORT INFORMATION
  Report Type: 
  Country: None (occurrence: None)
  Receive Date: 20110819
  Receipt Date: 20110809
  Transmission Date: 20111222
  Serious: Yes (Hospitalization, Other)
  Sender: FDA-Public Use
  Company Number: TPA2011A04772

PATIENT
  Sex: Male

DRUGS (1)
  1. ACTOS [Suspect]
     Dates: end: 20110808

REACTIONS (2)
  - BLADDER CANCER [None]
  - POST PROCEDURAL COMPLICATION [None]
